FAERS Safety Report 11265270 (Version 5)
Quarter: 2016Q2

REPORT INFORMATION
  Report Type: Report from Study
  Country: US (occurrence: US)
  Receive Date: 20150713
  Receipt Date: 20160621
  Transmission Date: 20160815
  Serious: Yes (Other)
  Sender: FDA-Public Use
  Company Number: US-ROCHE-ITM201504IM014084

PATIENT
  Age: 82 Year
  Sex: Female
  Weight: 79.45 kg

DRUGS (11)
  1. ESBRIET [Suspect]
     Active Substance: PIRFENIDONE
     Indication: IDIOPATHIC PULMONARY FIBROSIS
     Dosage: 2 PILLS 3 TIMES A DAY
     Route: 048
     Dates: start: 20150402
  2. ESBRIET [Suspect]
     Active Substance: PIRFENIDONE
     Route: 048
     Dates: start: 2015
  3. PREDNISONE. [Concomitant]
     Active Substance: PREDNISONE
     Indication: PULMONARY FIBROSIS
     Route: 048
     Dates: start: 20140416
  4. ATENOLOL. [Concomitant]
     Active Substance: ATENOLOL
     Indication: HYPERTENSION
     Route: 048
  5. ASA [Concomitant]
     Active Substance: ASPIRIN
     Route: 048
  6. ENALAPRIL [Concomitant]
     Active Substance: ENALAPRIL
     Indication: HYPERTENSION
     Route: 048
     Dates: start: 20140314
  7. LIPITOR [Concomitant]
     Active Substance: ATORVASTATIN CALCIUM
     Indication: HYPERLIPIDAEMIA
     Route: 048
     Dates: start: 20140314
  8. ESBRIET [Suspect]
     Active Substance: PIRFENIDONE
     Route: 048
     Dates: start: 20150409
  9. ESBRIET [Suspect]
     Active Substance: PIRFENIDONE
     Route: 048
     Dates: start: 20150929, end: 20151007
  10. ESBRIET [Suspect]
     Active Substance: PIRFENIDONE
     Dosage: 2 CAPSULES
     Route: 048
     Dates: start: 20150325
  11. ESBRIET [Suspect]
     Active Substance: PIRFENIDONE
     Route: 048
     Dates: start: 20150420, end: 20150703

REACTIONS (12)
  - Rash papular [Recovering/Resolving]
  - Decreased appetite [Unknown]
  - Dyspepsia [Recovering/Resolving]
  - Abdominal discomfort [Unknown]
  - Fatigue [Unknown]
  - Pruritus [Not Recovered/Not Resolved]
  - Petechiae [Not Recovered/Not Resolved]
  - Photosensitivity reaction [Recovered/Resolved]
  - Nausea [Unknown]
  - Diarrhoea [Unknown]
  - Rash [Recovered/Resolved]
  - Headache [Unknown]

NARRATIVE: CASE EVENT DATE: 2015
